FAERS Safety Report 8764216 (Version 1)
Quarter: 2012Q4

REPORT INFORMATION
  Report Type: Spontaneous
  Country: US (occurrence: None)
  Receive Date: 20120828
  Receipt Date: 20120828
  Transmission Date: 20130627
  Serious: Yes (Hospitalization, Other)
  Sender: FDA-Public Use
  Company Number: TPA2012A03039

PATIENT
  Age: 56 Year
  Sex: Male

DRUGS (10)
  1. ACTOS (PIOGLITAZONE HYDROCHLORIDE) [Suspect]
     Indication: TYPE 2 DIABETES MELLITUS
     Dates: start: 2007
  2. ACTOS (PIOGLITAZONE HYDROCHLORIDE) [Suspect]
     Indication: TYPE 2 DIABETES MELLITUS
     Dates: start: 2008, end: 2009
  3. METFORMIN [Concomitant]
  4. GLUCOPHAGE (METFORMIN) [Concomitant]
  5. PRANDIN (DEFLAZACORT) [Concomitant]
  6. DIABETA (GLIBENCLAMIDE) [Concomitant]
  7. LANTUS (INSULIN GLARGINE) [Concomitant]
  8. GLUCOTROL (GLIPIZIDE) [Concomitant]
  9. AMARYL (GLIMEPIRIDE) [Concomitant]
  10. BYETTA (EXENATIDE) [Concomitant]

REACTIONS (3)
  - Depression [None]
  - Bladder transitional cell carcinoma [None]
  - Transitional cell carcinoma urethra [None]
